FAERS Safety Report 13459171 (Version 2)
Quarter: 2017Q2

REPORT INFORMATION
  Report Type: Spontaneous
  Country: RU (occurrence: RU)
  Receive Date: 20170419
  Receipt Date: 20170427
  Transmission Date: 20170830
  Serious: Yes (Other)
  Sender: FDA-Public Use
  Company Number: RU-STRIDES ARCOLAB LIMITED-2017SP006490

PATIENT

DRUGS (5)
  1. LOPINAVIR + RITONAVIR [Suspect]
     Active Substance: LOPINAVIR\RITONAVIR
     Indication: PRODUCT USED FOR UNKNOWN INDICATION
     Dosage: UNK, UNKNOWN
     Route: 064
  2. LAMIVUDINE AND ZIDOVUDINE TABLETS [Suspect]
     Active Substance: LAMIVUDINE\ZIDOVUDINE
     Dosage: UNK, UNKNOWN
     Route: 064
  3. EDURANT [Suspect]
     Active Substance: RILPIVIRINE HYDROCHLORIDE
     Indication: PRODUCT USED FOR UNKNOWN INDICATION
     Dosage: UNK, UNKNOWN
     Route: 064
  4. LAMIVUDINE AND ZIDOVUDINE TABLETS [Suspect]
     Active Substance: LAMIVUDINE\ZIDOVUDINE
     Indication: PRODUCT USED FOR UNKNOWN INDICATION
     Dosage: UNK, UNKNOWN
     Route: 064
  5. LOPINAVIR + RITONAVIR [Suspect]
     Active Substance: LOPINAVIR\RITONAVIR
     Dosage: UNK, UNKNOWN
     Route: 064

REACTIONS (2)
  - Foetal growth restriction [Unknown]
  - Foetal exposure during pregnancy [Unknown]
